FAERS Safety Report 21251368 (Version 1)
Quarter: 2022Q3

REPORT INFORMATION
  Report Type: Spontaneous
  Country: JP (occurrence: JP)
  Receive Date: 20220825
  Receipt Date: 20220825
  Transmission Date: 20221026
  Serious: Yes (Other)
  Sender: FDA-Public Use
  Company Number: JP-NOVARTISPH-NVSJ2022JP096097

PATIENT
  Age: 42 Year
  Sex: Female
  Weight: 48 kg

DRUGS (4)
  1. SUMATRIPTAN SUCCINATE [Suspect]
     Active Substance: SUMATRIPTAN SUCCINATE
     Indication: Migraine
     Dosage: 50 MG/TIME
     Route: 048
  2. LIDOCAINE [Suspect]
     Active Substance: LIDOCAINE
     Indication: Pain management
     Dosage: 0.5 ML
     Route: 050
  3. ACETAMINOPHEN [Concomitant]
     Active Substance: ACETAMINOPHEN
     Indication: Migraine
     Dosage: 600 MG/TIME
     Route: 048
  4. ACETAMINOPHEN [Concomitant]
     Active Substance: ACETAMINOPHEN
     Dosage: UNK
     Route: 048

REACTIONS (6)
  - Migraine [Recovering/Resolving]
  - Somnolence [Unknown]
  - Oropharyngeal discomfort [Unknown]
  - Dysgeusia [Unknown]
  - Therapeutic response decreased [Unknown]
  - Product use in unapproved indication [Unknown]
